FAERS Safety Report 5346229-X (Version None)
Quarter: 2007Q2

REPORT INFORMATION
  Report Type: 
  Country: None (occurrence: None)
  Receive Date: 20070426
  Receipt Date: 20060317
  Transmission Date: 20071010
  Serious: Yes (Other)
  Sender: FDA-Public Use
  Company Number: US-JNJFOC-20060304757

PATIENT
  Sex: Female
  Weight: 45.3597 kg

DRUGS (1)
  1. ULTRAM [Suspect]
     Indication: RESTLESS LEGS SYNDROME
     Dosage: 50 MG, 1 IN 1 DAY

REACTIONS (3)
  - DRUG WITHDRAWAL SYNDROME [None]
  - GRAND MAL CONVULSION [None]
  - PAIN IN EXTREMITY [None]
